FAERS Safety Report 5712264-2 (Version None)
Quarter: 2008Q2

REPORT INFORMATION
  Report Type: 
  Country: None (occurrence: None)
  Receive Date: 20080421
  Receipt Date: 20080421
  Transmission Date: 20081010
  Serious: No
  Sender: FDA-Public Use
  Company Number: None

PATIENT
  Sex: Male
  Weight: 88.4514 kg

DRUGS (2)
  1. FINASTERIDE [Suspect]
     Indication: PROSTATIC DISORDER
     Dosage: 1 DAILY PO
     Route: 048
     Dates: start: 20080401, end: 20080418
  2. FLOMAX [Suspect]
     Indication: PROSTATIC DISORDER
     Dosage: 1 DAILY PO
     Route: 048
     Dates: start: 20080201, end: 20080418

REACTIONS (2)
  - SKIN EXFOLIATION [None]
  - SUNBURN [None]
